FAERS Safety Report 24974281 (Version 1)
Quarter: 2025Q1

REPORT INFORMATION
  Report Type: Spontaneous
  Country: PL (occurrence: PL)
  Receive Date: 20250217
  Receipt Date: 20250217
  Transmission Date: 20250409
  Serious: Yes (Hospitalization, Other)
  Sender: GLAXOSMITHKLINE
  Company Number: PL-GSK-PL2025GSK018513

PATIENT

DRUGS (4)
  1. LAMOTRIGINE [Suspect]
     Active Substance: LAMOTRIGINE
     Indication: Bipolar disorder
  2. QUETIAPINE [Suspect]
     Active Substance: QUETIAPINE
     Indication: Bipolar disorder
  3. QUETIAPINE [Suspect]
     Active Substance: QUETIAPINE
     Indication: Delirium
  4. PREGABALIN [Suspect]
     Active Substance: PREGABALIN
     Indication: Bipolar disorder

REACTIONS (6)
  - Overdose [Unknown]
  - Septic shock [Recovering/Resolving]
  - Lung consolidation [Unknown]
  - Delirium [Recovering/Resolving]
  - Normocytic anaemia [Recovering/Resolving]
  - Acute kidney injury [Recovering/Resolving]
